FAERS Safety Report 19983673 (Version 6)
Quarter: 2022Q4

REPORT INFORMATION
  Report Type: Report from Study
  Country: CO (occurrence: CO)
  Receive Date: 20211022
  Receipt Date: 20221015
  Transmission Date: 20230113
  Serious: Yes (Life-Threatening, Hospitalization, Other)
  Sender: FDA-Public Use
  Company Number: CO-ABBVIE-21K-036-4131620-00

PATIENT
  Age: 65 Year
  Sex: Female
  Weight: 50 kg

DRUGS (1)
  1. ZEMPLAR [Suspect]
     Active Substance: PARICALCITOL
     Indication: Chronic kidney disease
     Dosage: 2 MICROGRAM
     Route: 048
     Dates: start: 20201023, end: 20210617

REACTIONS (16)
  - Myocardial infarction [Recovering/Resolving]
  - Blood glucose abnormal [Recovering/Resolving]
  - General physical health deterioration [Recovering/Resolving]
  - Skin laceration [Recovered/Resolved]
  - Bacterial infection [Recovering/Resolving]
  - Leg amputation [Recovering/Resolving]
  - Unevaluable event [Recovered/Resolved]
  - Depressed mood [Recovering/Resolving]
  - Discouragement [Recovering/Resolving]
  - Amputation [Recovered/Resolved]
  - Amputation [Recovered/Resolved]
  - Postoperative wound infection [Recovered/Resolved]
  - Blood potassium abnormal [Recovered/Resolved]
  - Blood potassium abnormal [Recovered/Resolved]
  - Blood potassium abnormal [Recovered/Resolved]
  - Haemoglobin abnormal [Not Recovered/Not Resolved]

NARRATIVE: CASE EVENT DATE: 20210901
